FAERS Safety Report 24270405 (Version 2)
Quarter: 2024Q4

REPORT INFORMATION
  Report Type: Spontaneous
  Country: US (occurrence: US)
  Receive Date: 20240830
  Receipt Date: 20241011
  Transmission Date: 20250115
  Serious: Yes (Other)
  Sender: ELI LILLY AND CO
  Company Number: US-ELI_LILLY_AND_COMPANY-US202408012409

PATIENT
  Age: 57 Year
  Sex: Male

DRUGS (6)
  1. HUMALOG [Suspect]
     Active Substance: INSULIN LISPRO
     Indication: Type 1 diabetes mellitus
     Dosage: UNK UNK, UNKNOWN
     Route: 065
     Dates: start: 2004
  2. HUMALOG [Suspect]
     Active Substance: INSULIN LISPRO
     Dosage: UNK UNK, UNKNOWN
     Route: 065
  3. HUMALOG [Suspect]
     Active Substance: INSULIN LISPRO
     Dosage: UNK UNK, UNKNOWN
     Route: 065
  4. DONEPEZIL [Suspect]
     Active Substance: DONEPEZIL
     Indication: Memory impairment
     Dosage: UNK UNK, UNKNOWN
     Route: 065
  5. DONEPEZIL [Suspect]
     Active Substance: DONEPEZIL
     Indication: Dementia
  6. NOVOLOG [Concomitant]
     Active Substance: INSULIN ASPART
     Indication: Product used for unknown indication

REACTIONS (9)
  - Parkinson^s disease [Unknown]
  - Dementia [Unknown]
  - Blood glucose increased [Unknown]
  - Angiopathy [Unknown]
  - Movement disorder [Unknown]
  - Glycosylated haemoglobin increased [Unknown]
  - Cystitis [Unknown]
  - Vomiting [Unknown]
  - Nausea [Unknown]

NARRATIVE: CASE EVENT DATE: 20170101
